FAERS Safety Report 5250335-8 (Version None)
Quarter: 2007Q1

REPORT INFORMATION
  Report Type: 
  Country: None (occurrence: None)
  Receive Date: 20070228
  Receipt Date: 20060329
  Transmission Date: 20070707
  Serious: Yes (Other)
  Sender: FDA-Public Use
  Company Number: US-GLAXOSMITHKLINE-A0599551A

PATIENT
  Age: 10 Year
  Sex: Male

DRUGS (2)
  1. LAMICTAL [Suspect]
     Indication: EPILEPSY
     Dosage: 125MG TWICE PER DAY
     Route: 048
     Dates: start: 20050101
  2. DILANTIN [Concomitant]

REACTIONS (3)
  - CONVULSION [None]
  - MEMORY IMPAIRMENT [None]
  - NAUSEA [None]
